FAERS Safety Report 9349061 (Version 1)
Quarter: 2013Q2

REPORT INFORMATION
  Report Type: Spontaneous
  Country: CH (occurrence: CH)
  Receive Date: 20130614
  Receipt Date: 20130614
  Transmission Date: 20140414
  Serious: Yes (Hospitalization)
  Sender: FDA-Public Use
  Company Number: CH-B.I. PHARMACEUTICALS,INC./RIDGEFIELD-2013-AP-00468SI

PATIENT
  Age: 88 Year
  Sex: Female

DRUGS (9)
  1. MICARDIS PLUS [Suspect]
     Dosage: 80 MG
     Route: 048
     Dates: end: 20130416
  2. TORASEM [Suspect]
     Dosage: 5 MG
     Dates: end: 20130416
  3. GALVUS [Suspect]
     Dosage: 100 MG
     Route: 048
     Dates: end: 20130416
  4. DIAMICRON [Suspect]
     Route: 048
     Dates: end: 20130416
  5. METFORMIN [Suspect]
     Dosage: 1000 MG
  6. LIPANTHYL [Suspect]
     Dosage: 200 MG
     Route: 048
     Dates: end: 20130416
  7. DILATREND [Concomitant]
     Dosage: 12.5 MG
     Route: 048
  8. HALCION [Concomitant]
     Dosage: 0.25 MG
     Route: 048
  9. DISTRANEURIN [Concomitant]
     Dosage: 300 MG
     Route: 048

REACTIONS (4)
  - Hepatocellular injury [Not Recovered/Not Resolved]
  - Hepatic enzyme increased [Not Recovered/Not Resolved]
  - Renal failure acute [Not Recovered/Not Resolved]
  - Cholecystitis [Not Recovered/Not Resolved]
